FAERS Safety Report 15219142 (Version 3)
Quarter: 2018Q3

REPORT INFORMATION
  Report Type: Spontaneous
  Country: JP (occurrence: JP)
  Receive Date: 20180731
  Receipt Date: 20180917
  Transmission Date: 20181010
  Serious: Yes (Life-Threatening, Other)
  Sender: FDA-Public Use
  Company Number: JP-009507513-1807JPN001361J

PATIENT
  Age: 43 Year
  Sex: Female
  Weight: 58 kg

DRUGS (13)
  1. ESLAX [Concomitant]
     Active Substance: ROCURONIUM BROMIDE
     Dosage: 10 MG, UNK
     Route: 042
     Dates: start: 20180703
  2. DEXART [Concomitant]
     Active Substance: DEXAMETHASONE SODIUM PHOSPHATE
     Indication: NAUSEA
     Dosage: 6.6 MG, UNK
     Route: 065
     Dates: start: 20180703, end: 20180703
  3. BRIDION [Suspect]
     Active Substance: SUGAMMADEX
     Indication: NEUROMUSCULAR BLOCKADE REVERSAL
     Dosage: 200 MG, QD
     Route: 042
     Dates: start: 20180703, end: 20180703
  4. ANAPEINE [Concomitant]
     Active Substance: ROPIVACAINE HYDROCHLORIDE
     Dosage: 15 MG, ONCE
     Route: 008
     Dates: start: 20180703, end: 20180703
  5. REMIFENTANIL HYDROCHLORIDE. [Concomitant]
     Active Substance: REMIFENTANIL HYDROCHLORIDE
     Indication: ANALGESIC THERAPY
     Dosage: 0.3 MG, ONCE
     Route: 065
     Dates: start: 20180703, end: 20180703
  6. ESLAX [Concomitant]
     Active Substance: ROCURONIUM BROMIDE
     Indication: NEUROMUSCULAR BLOCKING THERAPY
     Dosage: 40 MG, ONCE
     Route: 065
     Dates: start: 20180703, end: 20180703
  7. CEFAZOLIN SODIUM. [Concomitant]
     Active Substance: CEFAZOLIN SODIUM
     Indication: INFECTION PROPHYLAXIS
     Dosage: 1 G, ONCE
     Route: 065
     Dates: start: 20180703, end: 20180703
  8. FENTANYL. [Concomitant]
     Active Substance: FENTANYL
     Indication: ANALGESIC THERAPY
     Dosage: 0.1 MG, ONCE
     Route: 065
     Dates: start: 20180703, end: 20180703
  9. XYLOCAINE [Concomitant]
     Active Substance: LIDOCAINE HYDROCHLORIDE
     Dosage: UNK
     Route: 065
     Dates: start: 20180703, end: 20180703
  10. FENTANYL. [Concomitant]
     Active Substance: FENTANYL
     Dosage: 0.1 MG, ONCE
     Route: 008
     Dates: start: 20180703, end: 20180703
  11. SEVOFLURANE. [Concomitant]
     Active Substance: SEVOFLURANE
     Dosage: UNK
     Route: 065
     Dates: start: 20180703, end: 20180703
  12. ANAPEINE [Concomitant]
     Active Substance: ROPIVACAINE HYDROCHLORIDE
     Indication: ANALGESIC THERAPY
     Dosage: 22.5 MG, ONCE
     Route: 008
     Dates: start: 20180703, end: 20180703
  13. DIPRIVAN [Concomitant]
     Active Substance: PROPOFOL
     Indication: SEDATION
     Dosage: 120 MG, ONCE
     Route: 065
     Dates: start: 20180703, end: 20180703

REACTIONS (5)
  - Face oedema [Recovered/Resolved]
  - Anaphylactic shock [Recovered/Resolved]
  - Blood pressure decreased [Recovered/Resolved]
  - Pruritus [Recovered/Resolved]
  - Vomiting [Recovered/Resolved]

NARRATIVE: CASE EVENT DATE: 20180703
